FAERS Safety Report 13579815 (Version 1)
Quarter: 2017Q2

REPORT INFORMATION
  Report Type: Spontaneous
  Country: US (occurrence: US)
  Receive Date: 20170525
  Receipt Date: 20170525
  Transmission Date: 20170830
  Serious: Yes (Other)
  Sender: FDA-Public Use
  Company Number: US-CLINIGEN GROUP PLC/ CLINIGEN HEALTHCARE LTD-E2B_00004566

PATIENT
  Age: 41 Year
  Sex: Male

DRUGS (5)
  1. AMPHOTERICIN B. [Concomitant]
     Active Substance: AMPHOTERICIN B
     Route: 042
  2. ERYTHROPOIETIN [Concomitant]
     Active Substance: ERYTHROPOIETIN
     Route: 065
  3. FOSCARNET?SODIUM [Suspect]
     Active Substance: FOSCARNET SODIUM
     Route: 042
  4. FILGRASTIM [Concomitant]
     Active Substance: FILGRASTIM
     Route: 065
  5. FOSCARNET?SODIUM [Suspect]
     Active Substance: FOSCARNET SODIUM
     Indication: CYTOMEGALOVIRUS INFECTION
     Route: 042
     Dates: start: 19920228

REACTIONS (3)
  - Hypokalaemia [Not Recovered/Not Resolved]
  - Blood creatinine increased [Not Recovered/Not Resolved]
  - Hypocalcaemia [Not Recovered/Not Resolved]

NARRATIVE: CASE EVENT DATE: 19920302
